FAERS Safety Report 15838101 (Version 2)
Quarter: 2019Q2

REPORT INFORMATION
  Report Type: Report from Study
  Country: None (occurrence: AR)
  Receive Date: 20190117
  Receipt Date: 20190629
  Transmission Date: 20190711
  Serious: Yes (Hospitalization, Other)
  Sender: FDA-Public Use
  Company Number: AR-ABBVIE-18K-007-2553864-00

PATIENT
  Sex: Female

DRUGS (1)
  1. HUMIRA [Suspect]
     Active Substance: ADALIMUMAB
     Indication: RHEUMATOID ARTHRITIS
     Route: 058
     Dates: start: 20180419, end: 2018

REACTIONS (10)
  - Peripheral artery occlusion [Recovering/Resolving]
  - Angioplasty [Recovering/Resolving]
  - Pain [Not Recovered/Not Resolved]
  - Postoperative abscess [Recovering/Resolving]
  - Limb mass [Recovered/Resolved]
  - Haemorrhage [Recovered/Resolved]
  - Poor peripheral circulation [Unknown]
  - Infected skin ulcer [Not Recovered/Not Resolved]
  - Pneumonia [Recovered/Resolved]
  - Impaired healing [Unknown]

NARRATIVE: CASE EVENT DATE: 2018
